FAERS Safety Report 13496134 (Version 1)
Quarter: 2017Q2

REPORT INFORMATION
  Report Type: Report from Study
  Country: None (occurrence: IT)
  Receive Date: 20170428
  Receipt Date: 20170428
  Transmission Date: 20170830
  Serious: Yes (Death)
  Sender: FDA-Public Use
  Company Number: IT-ABBVIE-17P-083-1956790-00

PATIENT
  Sex: Male
  Weight: 100 kg

DRUGS (1)
  1. DUODOPA [Suspect]
     Active Substance: CARBIDOPA\LEVODOPA
     Indication: PARKINSON^S DISEASE
     Dosage: MD 9+3, CR 4.4, ED 5
     Route: 050
     Dates: start: 20140121, end: 20170419

REACTIONS (1)
  - Lung disorder [Fatal]
